FAERS Safety Report 25516490 (Version 1)
Quarter: 2025Q3

REPORT INFORMATION
  Report Type: Other
  Country: EU (occurrence: EU)
  Receive Date: 20250704
  Receipt Date: 20250704
  Transmission Date: 20251021
  Serious: Yes (Life-Threatening, Hospitalization)
  Sender: Atnahs Healthcare
  Company Number: None

PATIENT
  Age: 52 Year
  Sex: Female

DRUGS (4)
  1. DIAZEPAM [Interacting]
     Active Substance: DIAZEPAM
     Indication: Intentional overdose
     Route: 048
     Dates: start: 20250312, end: 20250312
  2. PAROXETINE [Interacting]
     Active Substance: PAROXETINE
     Indication: Intentional overdose
     Route: 048
     Dates: start: 20250312, end: 20250312
  3. PREGABALIN [Interacting]
     Active Substance: PREGABALIN
     Indication: Intentional overdose
     Route: 048
     Dates: start: 20250312, end: 20250312
  4. TRAZODONE HYDROCHLORIDE [Concomitant]
     Active Substance: TRAZODONE HYDROCHLORIDE
     Indication: Depression
     Dosage: 100 MG, 1X/DAY
     Route: 048
     Dates: start: 20250218, end: 20250311

REACTIONS (2)
  - Intentional overdose [Recovered/Resolved]
  - Depressed level of consciousness [Recovered/Resolved]

NARRATIVE: CASE EVENT DATE: 20250312
